FAERS Safety Report 6589625-5 (Version None)
Quarter: 2010Q1

REPORT INFORMATION
  Report Type: 
  Country: None (occurrence: None)
  Receive Date: 20100212
  Receipt Date: 20100128
  Transmission Date: 20100710
  Serious: Yes (Hospitalization)
  Sender: FDA-Public Use
  Company Number: UTC-000837

PATIENT
  Age: 67 Year
  Sex: Female

DRUGS (17)
  1. TYVASO [Suspect]
     Indication: PULMONARY ARTERIAL HYPERTENSION
     Dosage: 215 MCG (54 MCG, 4 IN 1 D), INHALATION
     Route: 055
     Dates: start: 20091204
  2. LASIX (FUROSMIDE) [Concomitant]
  3. OXYGEN (OXYGEN) [Concomitant]
  4. HYDRALAZINE HCL [Concomitant]
  5. SYNTHROID [Concomitant]
  6. ZOLOFT [Concomitant]
  7. LIPITOR [Concomitant]
  8. CARAFATE [Concomitant]
  9. LANTUS [Concomitant]
  10. CALCITRIOL [Concomitant]
  11. OMEPRAZOLE [Concomitant]
  12. ASPIRIN [Concomitant]
  13. NOVOLOG [Concomitant]
  14. METOPROLOL (METOPROLOL) [Concomitant]
  15. DILTIA XT (DILTIAZEM HYDROCHORIDE) [Concomitant]
  16. ISOSORBIDE MONONITRATE [Concomitant]
  17. ALLOPURINOL [Concomitant]

REACTIONS (1)
  - FLUID OVERLOAD [None]
